FAERS Safety Report 10247402 (Version 1)
Quarter: 2014Q2

REPORT INFORMATION
  Report Type: Spontaneous
  Country: AU (occurrence: None)
  Receive Date: 20140617
  Receipt Date: 20140617
  Transmission Date: 20141212
  Serious: Yes (Hospitalization)
  Sender: FDA-Public Use
  Company Number: IMP_07682_2014

PATIENT
  Age: 41 Year
  Sex: Male

DRUGS (5)
  1. SODIUM VALPROATE (SODIUM VALPROATE) [Suspect]
     Indication: PRODUCT USED FOR UNKNOWN INDICATION
     Dosage: (1 DAY UNTIL NOT CONTINUING); (240 MG 1X, [NOT THE PRESCRIBED AMOUNT])?
  2. CARBAMAZEPINE (CARBAMAZEPINE) [Suspect]
     Indication: PRODUCT USED FOR UNKNOWN INDICATION
     Dosage: (1 DAY UNTIL NOT CONTINUING) (10 G 1X, [NOT THE PRESCRIBED AMOUNT])?
  3. FLUOXETINE (FLUOXETINE) [Suspect]
     Indication: PRODUCT USED FOR UNKNOWN INDICATION
     Dosage: (1 DAY UNTIL NOT CONTINUING) (240 MG 1X, [NOT THE PRESCRIBED AMOUNT]}
  4. QUETIAPINE (QUETIAPINE) [Suspect]
     Indication: PRODUCT USED FOR UNKNOWN INDICATION
     Dosage: (1 DAY UNTIL NOT CONTINUING) (18 G 1X, [NOT THE PRESCRIBED AMOUNT])?
  5. OXAZEPAM (OXAZEPAM) [Suspect]
     Indication: PRODUCT USED FOR UNKNOWN INDICATION
     Dosage: (1 DAY UNTIL NOT CONTINUING) (375 MG 1X, [NOT THE PRESCRIBED AMOUNT])?

REACTIONS (4)
  - Shock [None]
  - Toxicity to various agents [None]
  - Hypotension [None]
  - Overdose [None]
